FAERS Safety Report 4959068-6 (Version None)
Quarter: 2006Q1

REPORT INFORMATION
  Report Type: 
  Country: None (occurrence: None)
  Receive Date: 20060328
  Receipt Date: 20060314
  Transmission Date: 20060701
  Serious: Yes (Other)
  Sender: FDA-Public Use
  Company Number: 06-000219

PATIENT
  Age: 31 Year
  Sex: Female
  Weight: 78 kg

DRUGS (1)
  1. ESTROSTEP FE [Suspect]
     Dosage: 20-30-35/1000 UG, ORAL
     Route: 048
     Dates: start: 19990211, end: 20020101

REACTIONS (10)
  - AMENORRHOEA [None]
  - ARTHRALGIA [None]
  - BACK PAIN [None]
  - DEPRESSION [None]
  - FIBROMYALGIA [None]
  - HEADACHE [None]
  - HYPOAESTHESIA [None]
  - SELF-MEDICATION [None]
  - THROMBOPHLEBITIS [None]
  - WEIGHT INCREASED [None]
